FAERS Safety Report 23902573 (Version 1)
Quarter: 2024Q2

REPORT INFORMATION
  Report Type: Spontaneous
  Country: US (occurrence: US)
  Receive Date: 20240527
  Receipt Date: 20240527
  Transmission Date: 20240716
  Serious: No
  Sender: FDA-Public Use
  Company Number: US-ABBVIE-5774760

PATIENT
  Age: 61 Year
  Sex: Female
  Weight: 79 kg

DRUGS (4)
  1. BOTOX [Suspect]
     Active Substance: ONABOTULINUMTOXINA
     Indication: Torticollis
     Dosage: TIME INTERVAL: AS NECESSARY
     Route: 030
     Dates: start: 20240506, end: 20240506
  2. PROCHLORPERAZINE [Concomitant]
     Active Substance: PROCHLORPERAZINE
     Indication: Nausea
  3. TIZANIDINE [Concomitant]
     Active Substance: TIZANIDINE
     Indication: Neck pain
  4. VITAMIN D3 [Concomitant]
     Active Substance: CHOLECALCIFEROL
     Indication: Vitamin supplementation

REACTIONS (3)
  - Muscle tightness [Not Recovered/Not Resolved]
  - Neck pain [Not Recovered/Not Resolved]
  - Back pain [Not Recovered/Not Resolved]

NARRATIVE: CASE EVENT DATE: 20240508
